FAERS Safety Report 16267764 (Version 1)
Quarter: 2019Q2

REPORT INFORMATION
  Report Type: Spontaneous
  Country: US (occurrence: US)
  Receive Date: 20190503
  Receipt Date: 20190503
  Transmission Date: 20190711
  Serious: No
  Sender: FDA-Public Use
  Company Number: US-ELI_LILLY_AND_COMPANY-US201904013712

PATIENT
  Sex: Female

DRUGS (4)
  1. HUMULIN R U-500 [Suspect]
     Active Substance: INSULIN HUMAN
     Dosage: 90 U, DAILY (BEFORE SUPPER)
     Route: 058
  2. HUMULIN R U-500 [Suspect]
     Active Substance: INSULIN HUMAN
     Dosage: 110 U, EACH MORNING (BEFORE BREAKFAST)
     Route: 058
  3. HUMULIN R U-500 [Suspect]
     Active Substance: INSULIN HUMAN
     Dosage: 80 U, DAILY (BEFORE SUPPER)
     Route: 058
  4. HUMULIN R U-500 [Suspect]
     Active Substance: INSULIN HUMAN
     Indication: TYPE 2 DIABETES MELLITUS
     Dosage: 130 U, EACH MORNING (BEFORE BREAKFAST)
     Route: 058
     Dates: start: 20190320

REACTIONS (9)
  - Weight increased [Unknown]
  - Discomfort [Unknown]
  - Blood glucose decreased [Unknown]
  - Burning sensation [Recovering/Resolving]
  - Pain in extremity [Not Recovered/Not Resolved]
  - Fatigue [Unknown]
  - Hypoaesthesia [Recovering/Resolving]
  - Drug hypersensitivity [Unknown]
  - Peripheral swelling [Unknown]
